FAERS Safety Report 7108143-9 (Version None)
Quarter: 2010Q4

REPORT INFORMATION
  Report Type: 
  Country: None (occurrence: None)
  Receive Date: 20101110
  Receipt Date: 20101029
  Transmission Date: 20110411
  Serious: Yes (Hospitalization)
  Sender: FDA-Public Use
  Company Number: 2010SP057901

PATIENT
  Age: 48 Year
  Sex: Female

DRUGS (1)
  1. REMERON SOLTAB [Suspect]
     Indication: DEPRESSION

REACTIONS (1)
  - DRUG SCREEN POSITIVE [None]
